FAERS Safety Report 16365009 (Version 2)
Quarter: 2019Q2

REPORT INFORMATION
  Report Type: Spontaneous
  Country: CA (occurrence: CA)
  Receive Date: 20190529
  Receipt Date: 20190607
  Transmission Date: 20190711
  Serious: Yes (Hospitalization, Other)
  Sender: FDA-Public Use
  Company Number: CA-ABBVIE-19S-028-2800190-00

PATIENT
  Sex: Male

DRUGS (1)
  1. LUPRON DEPOT [Suspect]
     Active Substance: LEUPROLIDE ACETATE
     Indication: PROSTATE CANCER
     Route: 030
     Dates: end: 20190516

REACTIONS (8)
  - Abdominal distension [Unknown]
  - Metastases to lymph nodes [Unknown]
  - Flank pain [Unknown]
  - Feeding disorder [Unknown]
  - Colon cancer [Unknown]
  - Fatigue [Unknown]
  - Metastases to liver [Unknown]
  - Fluid intake reduced [Unknown]
